FAERS Safety Report 6561482-2 (Version None)
Quarter: 2010Q1

REPORT INFORMATION
  Report Type: 
  Country: None (occurrence: None)
  Receive Date: 20100130
  Receipt Date: 20091019
  Transmission Date: 20100710
  Serious: No
  Sender: FDA-Public Use
  Company Number: US-ABBOTT-09P-163-0603919-00

PATIENT
  Sex: Female
  Weight: 70.37 kg

DRUGS (11)
  1. HUMIRA [Suspect]
     Indication: CROHN'S DISEASE
     Dates: start: 20090109, end: 20090731
  2. HUMIRA [Suspect]
     Indication: RHEUMATOID ARTHRITIS
     Dates: start: 20090801
  3. LITHIUM [Concomitant]
     Indication: BIPOLAR DISORDER
  4. LAMICTAL [Concomitant]
     Indication: BIPOLAR DISORDER
  5. DARVOCET [Concomitant]
     Indication: DRUG USE FOR UNKNOWN INDICATION
  6. PROPRANOLOL [Concomitant]
     Indication: DRUG USE FOR UNKNOWN INDICATION
  7. INDERAL [Concomitant]
     Indication: DRUG USE FOR UNKNOWN INDICATION
  8. ZOVIRAX [Concomitant]
     Indication: DRUG USE FOR UNKNOWN INDICATION
  9. ESOFEX [Concomitant]
     Indication: DRUG USE FOR UNKNOWN INDICATION
  10. VYTORIN [Concomitant]
     Indication: DRUG USE FOR UNKNOWN INDICATION
  11. AMBIEN [Concomitant]
     Indication: DRUG USE FOR UNKNOWN INDICATION

REACTIONS (5)
  - ACTIVITIES OF DAILY LIVING IMPAIRED [None]
  - ARTHRALGIA [None]
  - INJECTION SITE HAEMATOMA [None]
  - MUSCULOSKELETAL STIFFNESS [None]
  - ORAL HERPES [None]
